FAERS Safety Report 13884336 (Version 3)
Quarter: 2021Q3

REPORT INFORMATION
  Report Type: Spontaneous
  Country: US (occurrence: US)
  Receive Date: 20170821
  Receipt Date: 20210723
  Transmission Date: 20211014
  Serious: No
  Sender: FDA-Public Use
  Company Number: US-CIPLA LTD.-2016US19880

PATIENT

DRUGS (4)
  1. TERBINAFINE. [Suspect]
     Active Substance: TERBINAFINE
     Dosage: 250 MILLIGRAM, QD
     Route: 048
     Dates: start: 20161012
  2. TERBINAFINE. [Suspect]
     Active Substance: TERBINAFINE
     Indication: PRODUCT USED FOR UNKNOWN INDICATION
     Dosage: 250 MILLIGRAM, QD
     Route: 048
     Dates: start: 20160823
  3. TERBINAFINE. [Suspect]
     Active Substance: TERBINAFINE
     Dosage: 1/2 TABLET, QD
     Route: 048
     Dates: start: 201610
  4. TERBINAFINE. [Suspect]
     Active Substance: TERBINAFINE
     Dosage: 1/4 TABLET, QD
     Route: 048

REACTIONS (10)
  - Gastrointestinal disorder [Unknown]
  - Visual impairment [Unknown]
  - Dizziness [Unknown]
  - Accidental exposure to product [Unknown]
  - Infection [Unknown]
  - Unevaluable event [Unknown]
  - Treatment noncompliance [Unknown]
  - Wrong technique in product usage process [Unknown]
  - Headache [Unknown]
  - Nausea [Unknown]

NARRATIVE: CASE EVENT DATE: 20161012
